FAERS Safety Report 14154353 (Version 3)
Quarter: 2017Q4

REPORT INFORMATION
  Report Type: Spontaneous
  Country: IT (occurrence: IT)
  Receive Date: 20171102
  Receipt Date: 20171201
  Transmission Date: 20180321
  Serious: Yes (Death, Other)
  Sender: FDA-Public Use
  Company Number: IT-ELI_LILLY_AND_COMPANY-IT201710011971

PATIENT
  Age: 32 Year
  Sex: Female

DRUGS (2)
  1. DOXORUBICIN [Suspect]
     Active Substance: DOXORUBICIN
     Indication: LEIOMYOSARCOMA
     Dosage: 75 MG/M2, UNKNOWN
     Route: 042
  2. LARTRUVO [Suspect]
     Active Substance: OLARATUMAB
     Indication: LEIOMYOSARCOMA
     Dosage: 15 MG/KG, UNKNOWN
     Route: 042

REACTIONS (7)
  - Hepatic function abnormal [Unknown]
  - Pancytopenia [Fatal]
  - Pyrexia [Fatal]
  - Renal failure [Fatal]
  - Tumour lysis syndrome [Unknown]
  - Hyperbilirubinaemia [Fatal]
  - Metastasis [Fatal]
